FAERS Safety Report 8238437-5 (Version None)
Quarter: 2012Q1

REPORT INFORMATION
  Report Type: 
  Country: None (occurrence: None)
  Receive Date: 20120327
  Receipt Date: 20120314
  Transmission Date: 20120608
  Serious: Yes (Hospitalization)
  Sender: FDA-Public Use
  Company Number: FR-ROCHE-1050684

PATIENT
  Age: 69 Year
  Sex: Male
  Weight: 58 kg

DRUGS (16)
  1. ATARAX [Concomitant]
     Dates: start: 20110607, end: 20110608
  2. LASIX [Concomitant]
     Dates: start: 20110406
  3. INOTUZUMAB OZOGAMICIN [Suspect]
     Indication: NON-HODGKIN'S LYMPHOMA
     Dosage: 0.8 MG/M2 ON DAY 2 OF EACH CYCLE
     Route: 042
     Dates: start: 20110406
  4. TINZAPARIN SODIUM [Suspect]
     Indication: PULMONARY EMBOLISM
     Dosage: 0.6 MG 1 PER DAY
     Route: 058
     Dates: start: 20110610, end: 20110618
  5. ZOFRAN [Concomitant]
     Dates: start: 20110607, end: 20110608
  6. DEXAMETHASONE [Suspect]
     Indication: NON-HODGKIN'S LYMPHOMA
     Dosage: 40 MG ON DAYS 1-4 OF EACH CYCLE
     Route: 048
  7. GEMCITABINE HYDROCHLORIDE [Suspect]
     Indication: NON-HODGKIN'S LYMPHOMA
     Dosage: 500 MG/M2 ON DAY 1 OF EACH CYCLE
     Route: 042
     Dates: start: 20110405
  8. TINZAPARIN SODIUM [Suspect]
     Dosage: 0.5 MG 1 PER DAY
     Route: 058
     Dates: start: 20110530
  9. FUNGIZONE [Concomitant]
     Dates: start: 20110519, end: 20110726
  10. HEXTRIL [Concomitant]
     Dates: start: 20110405, end: 20110726
  11. MABTHERA [Suspect]
     Indication: NON-HODGKIN'S LYMPHOMA
     Dosage: 375 MG/M2 ON DAY 1 OF EACH CYCLE
     Route: 042
     Dates: start: 20110405
  12. CISPLATIN [Suspect]
     Indication: NON-HODGKIN'S LYMPHOMA
     Dosage: 50 MG/M2 ON DAY 1 OF EACH CYCLE
  13. NEXIUM [Concomitant]
     Dates: start: 20110405
  14. ACETAMINOPHEN [Concomitant]
     Dates: start: 20110607, end: 20110608
  15. SODIUM BICARBONATE [Concomitant]
     Dates: start: 20110405, end: 20110726
  16. PENTACARINAT [Concomitant]
     Dates: start: 20110601, end: 20110705

REACTIONS (1)
  - HAEMATURIA [None]
